FAERS Safety Report 5401998-5 (Version None)
Quarter: 2007Q3

REPORT INFORMATION
  Report Type: 
  Country: None (occurrence: None)
  Receive Date: 20070727
  Receipt Date: 20070720
  Transmission Date: 20080115
  Serious: Yes (Disabling)
  Sender: FDA-Public Use
  Company Number: 062-C5013-07071004

PATIENT
  Age: 76 Year
  Sex: Male
  Weight: 79 kg

DRUGS (7)
  1. CC-5013 (LENALIDOMIDE) (CAPSULES) [Suspect]
     Indication: MULTIPLE MYELOMA
     Dosage: 25 MG, DAILY, ORAL
     Route: 047
     Dates: start: 20070711, end: 20070719
  2. DEXAMETHASONE [Suspect]
     Indication: MULTIPLE MYELOMA
     Dosage: ORAL
     Route: 048
     Dates: start: 20070711, end: 20070719
  3. PANTOPRAZOLE SODIUM [Concomitant]
  4. GLIMEPIRIDE [Concomitant]
  5. INSULIN (INSULIN) [Concomitant]
  6. DICLOFENAC (DICLOFENAC) [Concomitant]
  7. ENOXAPARIN SODIUM [Concomitant]

REACTIONS (1)
  - EXTRASYSTOLES [None]
